FAERS Safety Report 4309271-3 (Version None)
Quarter: 2004Q1

REPORT INFORMATION
  Report Type: 
  Country: None (occurrence: None)
  Receive Date: 20040227
  Receipt Date: 20040220
  Transmission Date: 20041129
  Serious: Yes (Hospitalization)
  Sender: FDA-Public Use
  Company Number: TCI2003A04677

PATIENT
  Age: 74 Year
  Sex: Male

DRUGS (12)
  1. ACTOS [Suspect]
     Indication: DIABETES MELLITUS
     Dosage: 15 MG (15 MG, 1 IN 1 D), ORAL
     Route: 048
     Dates: start: 20031217, end: 20031225
  2. ACETYLSALICYLIC ACID [Concomitant]
  3. ISOSORBIDE MONONITRATE [Concomitant]
  4. TICLOPIDINE HYDROCHLORIDE [Concomitant]
  5. CILOSTAZOL [Concomitant]
  6. OMEPRAZOLE [Concomitant]
  7. IRSOGLADINE MALEATE [Concomitant]
  8. MEXILETINE HYDROCHLORIDE [Concomitant]
  9. METILDIGOXIN [Concomitant]
  10. RILMAZAFONE [Concomitant]
  11. CAMOSTAT MESILATE [Concomitant]
  12. ATORVASTATIN [Concomitant]

REACTIONS (2)
  - AGRANULOCYTOSIS [None]
  - WHITE BLOOD CELL COUNT DECREASED [None]
